FAERS Safety Report 4945740-0 (Version None)
Quarter: 2006Q1

REPORT INFORMATION
  Report Type: 
  Country: None (occurrence: None)
  Receive Date: 20060117
  Receipt Date: 20050315
  Transmission Date: 20060701
  Serious: Yes (Other)
  Sender: FDA-Public Use
  Company Number: A03200500701

PATIENT
  Age: 66 Year
  Sex: Female
  Weight: 49.8957 kg

DRUGS (8)
  1. PLAVIX [Suspect]
     Indication: STENT PLACEMENT
     Dosage: 75 MG QD ORAL
     Route: 048
     Dates: start: 20050209
  2. PLAVIX [Suspect]
     Indication: TACHYCARDIA
     Dosage: 75 MG QD ORAL
     Route: 048
     Dates: start: 20050209
  3. ASPIRIN [Suspect]
     Indication: ANTICOAGULANT THERAPY
     Dosage: 81 MG QD- ORAL
     Route: 048
  4. CORTICOSTEROID NOS -TABLET- [Suspect]
     Dosage: ORAL
     Route: 048
  5. OXYGEN [Concomitant]
  6. OLMESARTAN [Concomitant]
  7. ALBUTEROL [Concomitant]
  8. FLUTICASONE PROPIONATE+SALMETEROL [Concomitant]

REACTIONS (3)
  - DYSPNOEA EXERTIONAL [None]
  - OEDEMA PERIPHERAL [None]
  - ULCER HAEMORRHAGE [None]
